FAERS Safety Report 23855603 (Version 1)
Quarter: 2024Q2

REPORT INFORMATION
  Report Type: Spontaneous
  Country: PL (occurrence: PL)
  Receive Date: 20240514
  Receipt Date: 20240514
  Transmission Date: 20240716
  Serious: Yes (Hospitalization, Other)
  Sender: FDA-Public Use
  Company Number: PL-009507513-2405POL002906

PATIENT
  Age: 66 Year
  Sex: Female

DRUGS (10)
  1. PEMBROLIZUMAB [Suspect]
     Active Substance: PEMBROLIZUMAB
     Indication: Squamous cell carcinoma
     Dosage: 200 MILLIGRAM
     Dates: start: 20210303
  2. PEMBROLIZUMAB [Suspect]
     Active Substance: PEMBROLIZUMAB
     Dosage: 400 MILLIGRAM, EVERY 6 WEEKS
     Dates: start: 2021
  3. PACLITAXEL [Suspect]
     Active Substance: PACLITAXEL
     Indication: Squamous cell carcinoma
     Dosage: 200 MILLIGRAM/SQ. METER
     Dates: start: 20210303
  4. PACLITAXEL [Suspect]
     Active Substance: PACLITAXEL
     Dosage: 175 MILLIGRAM/SQ. METER
     Dates: start: 2021
  5. CARBOPLATIN [Suspect]
     Active Substance: CARBOPLATIN
     Indication: Squamous cell carcinoma
     Dosage: AREA UNDER THE CURVE (AUC) 6
     Dates: start: 20210303
  6. CARBOPLATIN [Suspect]
     Active Substance: CARBOPLATIN
     Dosage: AREA UNDER THE CURVE (AUC) 6
     Dates: start: 2021
  7. BISOPROLOL [Concomitant]
     Active Substance: BISOPROLOL\BISOPROLOL FUMARATE
  8. METFORMIN [Concomitant]
     Active Substance: METFORMIN HYDROCHLORIDE
  9. GLIMEPIRIDE [Concomitant]
     Active Substance: GLIMEPIRIDE
  10. HYDROCHLOROTHIAZIDE\VALSARTAN [Concomitant]
     Active Substance: HYDROCHLOROTHIAZIDE\VALSARTAN
     Dosage: 25 MG (+) 160 MG

REACTIONS (17)
  - Pneumonia haemophilus [Recovering/Resolving]
  - Acute respiratory failure [Recovering/Resolving]
  - Hypothyroidism [Unknown]
  - Anaemia [Unknown]
  - Spinal pain [Unknown]
  - Pain [Unknown]
  - Musculoskeletal disorder [Unknown]
  - Therapy partial responder [Unknown]
  - Thyroiditis [Unknown]
  - Bronchiectasis [Unknown]
  - Bone metabolism disorder [Unknown]
  - Spinal compression fracture [Unknown]
  - Haemangioma of bone [Unknown]
  - Musculoskeletal disorder [Unknown]
  - Rib fracture [Unknown]
  - Bronchitis bacterial [Unknown]
  - Pulmonary hilar enlargement [Unknown]

NARRATIVE: CASE EVENT DATE: 20210101
